FAERS Safety Report 12520165 (Version 1)
Quarter: 2016Q2

REPORT INFORMATION
  Report Type: Spontaneous
  Country: US (occurrence: US)
  Receive Date: 20160630
  Receipt Date: 20160630
  Transmission Date: 20160815
  Serious: No
  Sender: FDA-Public Use
  Company Number: US-ELI_LILLY_AND_COMPANY-US201606010024

PATIENT
  Age: 68 Year
  Sex: Female

DRUGS (1)
  1. HUMULIN N [Suspect]
     Active Substance: INSULIN HUMAN
     Indication: DIABETES MELLITUS
     Dosage: 30 U, QD
     Route: 065
     Dates: start: 1995, end: 20160615

REACTIONS (7)
  - Diarrhoea [Unknown]
  - Blood glucose increased [Unknown]
  - Skin odour abnormal [Unknown]
  - Feeling abnormal [Unknown]
  - Drug ineffective [Unknown]
  - Vomiting [Unknown]
  - Drug dose omission [Unknown]

NARRATIVE: CASE EVENT DATE: 20160615
